FAERS Safety Report 15361499 (Version 1)
Quarter: 2018Q3

REPORT INFORMATION
  Report Type: Spontaneous
  Country: US (occurrence: US)
  Receive Date: 20180831
  Receipt Date: 20180831
  Transmission Date: 20181010
  Serious: No
  Sender: FDA-Public Use
  Company Number: None

PATIENT
  Age: 66 Year
  Sex: Female
  Weight: 80.29 kg

DRUGS (1)
  1. RASUVO [Suspect]
     Active Substance: METHOTREXATE SODIUM
     Indication: RHEUMATOID ARTHRITIS
     Dosage: 20MG (0.4ML) SUBCUTANEOUSLY ONCE WEEKLY ON THE SAME DAY EACH WEEK AS DIRECTED
     Route: 058
     Dates: start: 201510

REACTIONS (1)
  - Cholelithiasis [None]
